FAERS Safety Report 16938706 (Version 1)
Quarter: 2019Q4

REPORT INFORMATION
  Report Type: Spontaneous
  Country: US (occurrence: US)
  Receive Date: 20190828
  Receipt Date: 20190828
  Transmission Date: 20200122
  Serious: Yes (Death, Life-Threatening, Hospitalization, Disabling, Other)
  Sender: FDA-Public Use
  Company Number: None

PATIENT
  Age: 59 Year
  Sex: Female
  Weight: 53.52 kg

DRUGS (3)
  1. RAINBOW LIGHT ONE PRENATAL VITAMINS WITH IRON [Concomitant]
  2. CIMZIA [Suspect]
     Active Substance: CERTOLIZUMAB PEGOL
     Indication: RHEUMATOID ARTHRITIS
     Dosage: ?          QUANTITY:2 SHOTS ;OTHER FREQUENCY:EVERY 4 WEEKS;?
     Dates: start: 2012, end: 20190501
  3. CHEMOTHERAPY [Concomitant]
     Active Substance: UNSPECIFIED INGREDIENT

REACTIONS (8)
  - Anaemia [None]
  - Weight decreased [None]
  - Diarrhoea [None]
  - Abdominal pain [None]
  - Hepatic neoplasm [None]
  - Nausea [None]
  - Decreased appetite [None]
  - Fatigue [None]

NARRATIVE: CASE EVENT DATE: 20190501
